FAERS Safety Report 5494774-9 (Version None)
Quarter: 2007Q4

REPORT INFORMATION
  Report Type: 
  Country: None (occurrence: None)
  Receive Date: 20071024
  Receipt Date: 20071016
  Transmission Date: 20080405
  Serious: Yes (Hospitalization)
  Sender: FDA-Public Use
  Company Number: US-GENENTECH-249642

PATIENT
  Sex: Female
  Weight: 66.667 kg

DRUGS (9)
  1. RITUXAN [Suspect]
     Indication: LYMPHOMA
     Route: 042
  2. PROCRIT [Suspect]
     Indication: ANAEMIA
     Dosage: 200 A?G, UNK
     Route: 058
  3. CYCLOPHOSPHAMIDE [Suspect]
     Indication: LYMPHOMA
     Route: 042
  4. DOXORUBICIN HCL [Suspect]
     Indication: LYMPHOMA
     Route: 042
  5. VINCRISTINE [Suspect]
     Indication: LYMPHOMA
     Route: 042
  6. PREDNISONE [Concomitant]
     Indication: DRUG USE FOR UNKNOWN INDICATION
     Dosage: UNK, Q3W
     Route: 048
  7. LORTAB [Concomitant]
     Indication: DRUG USE FOR UNKNOWN INDICATION
     Dosage: 10 MG, Q6H
  8. PROTONIX [Concomitant]
     Indication: DRUG USE FOR UNKNOWN INDICATION
     Dosage: 40 MG, QD
  9. ZOFRAN [Concomitant]
     Indication: DRUG USE FOR UNKNOWN INDICATION
     Dosage: 8 MG, Q8H

REACTIONS (2)
  - ASTHENIA [None]
  - IRRITABLE BOWEL SYNDROME [None]
